FAERS Safety Report 7249417-0 (Version None)
Quarter: 2011Q1

REPORT INFORMATION
  Report Type: 
  Country: None (occurrence: None)
  Receive Date: 20110128
  Receipt Date: 20101202
  Transmission Date: 20110831
  Serious: Yes (Hospitalization, Other)
  Sender: FDA-Public Use
  Company Number: US-BAYER-201025590NA

PATIENT
  Sex: Female
  Weight: 86 kg

DRUGS (9)
  1. AUGMENTIN '125' [Concomitant]
  2. ATENOLOL [Concomitant]
     Indication: HEADACHE
     Dosage: UNK
     Dates: start: 20080101, end: 20090601
  3. YASMIN [Suspect]
     Indication: CONTRACEPTION
     Dosage: UNK UNK, UNK
     Route: 048
     Dates: start: 20060201, end: 20060901
  4. YAZ [Suspect]
     Indication: CONTRACEPTION
     Dosage: UNK UNK, UNK
     Route: 048
     Dates: start: 20070701, end: 20081201
  5. YAZ [Suspect]
     Indication: MENSTRUAL DISORDER
  6. MOTRIN [Concomitant]
     Indication: HEADACHE
  7. ATENOLOL [Concomitant]
     Indication: HYPERTENSION
  8. DARVOCET [Concomitant]
  9. YASMIN [Suspect]
     Indication: MENSTRUAL DISORDER
     Dosage: UNK
     Dates: start: 20070801, end: 20080201

REACTIONS (3)
  - CHOLECYSTITIS CHRONIC [None]
  - CHOLELITHIASIS [None]
  - CHOLECYSTITIS ACUTE [None]
